FAERS Safety Report 5772502-7 (Version None)
Quarter: 2008Q2

REPORT INFORMATION
  Report Type: 
  Country: None (occurrence: None)
  Receive Date: 20080613
  Receipt Date: 20080603
  Transmission Date: 20081010
  Serious: Yes (Hospitalization)
  Sender: FDA-Public Use
  Company Number: FR-ABBOTT-08P-056-0455198-00

PATIENT
  Sex: Female

DRUGS (4)
  1. HUMIRA [Suspect]
     Indication: CROHN'S DISEASE
     Route: 058
     Dates: start: 20070613, end: 20080312
  2. FLUPHENAZINE [Concomitant]
     Indication: DRUG USE FOR UNKNOWN INDICATION
     Route: 048
  3. CYAMEMAZINE [Concomitant]
     Indication: DRUG USE FOR UNKNOWN INDICATION
     Route: 048
  4. MEPRONIZINE [Concomitant]
     Indication: DRUG USE FOR UNKNOWN INDICATION
     Route: 048

REACTIONS (10)
  - CROHN'S DISEASE [None]
  - DIARRHOEA [None]
  - HILAR LYMPHADENOPATHY [None]
  - HYPOKALAEMIA [None]
  - HYPOTENSION [None]
  - INFLAMMATION [None]
  - LUNG ABSCESS [None]
  - LUNG DISORDER [None]
  - UNEVALUABLE EVENT [None]
  - VOMITING [None]
